FAERS Safety Report 10052913 (Version 2)
Quarter: 2014Q2

REPORT INFORMATION
  Report Type: Spontaneous
  Country: US (occurrence: US)
  Receive Date: 20140402
  Receipt Date: 20140422
  Transmission Date: 20141212
  Serious: Yes (Death)
  Sender: FDA-Public Use
  Company Number: US-CELGENEUS-163-21880-14034729

PATIENT
  Age: 71 Year
  Sex: Female

DRUGS (2)
  1. REVLIMID [Suspect]
     Indication: MYELODYSPLASTIC SYNDROME
     Dosage: 5 MILLIGRAM
     Route: 048
     Dates: start: 201403, end: 20140304
  2. EXJADE [Concomitant]
     Indication: MYELODYSPLASTIC SYNDROME
     Dosage: 1000 MILLIGRAM
     Route: 058
     Dates: start: 20121022, end: 20140303

REACTIONS (1)
  - Myelodysplastic syndrome [Fatal]
